FAERS Safety Report 14109544 (Version 1)
Quarter: 2017Q4

REPORT INFORMATION
  Report Type: Spontaneous
  Country: US (occurrence: US)
  Receive Date: 20171020
  Receipt Date: 20171020
  Transmission Date: 20180321
  Serious: Yes (Hospitalization)
  Sender: FDA-Public Use
  Company Number: US-BEH-2017084439

PATIENT
  Sex: Male
  Weight: 81.63 kg

DRUGS (40)
  1. FUROSEMIDE. [Concomitant]
     Active Substance: FUROSEMIDE
  2. NOVOLOG [Concomitant]
     Active Substance: INSULIN ASPART
  3. LASIX [Concomitant]
     Active Substance: FUROSEMIDE
  4. ACETAMINOPHEN. [Concomitant]
     Active Substance: ACETAMINOPHEN
  5. BUDESONIDE. [Concomitant]
     Active Substance: BUDESONIDE
  6. KLOR-CON [Concomitant]
     Active Substance: POTASSIUM CHLORIDE
  7. PHENERGAN [Concomitant]
     Active Substance: PROMETHAZINE HYDROCHLORIDE
  8. ALBUTEROL                          /00139501/ [Concomitant]
     Active Substance: ALBUTEROL
  9. SPIRIVA [Concomitant]
     Active Substance: TIOTROPIUM BROMIDE MONOHYDRATE
  10. PREDNISONE. [Concomitant]
     Active Substance: PREDNISONE
  11. FAMOTIDINE. [Concomitant]
     Active Substance: FAMOTIDINE
  12. HYDROCODONE BITARTRATE AND ACETAMINOPHEN [Concomitant]
     Active Substance: ACETAMINOPHEN\HYDROCODONE BITARTRATE
  13. METOLAZONE. [Concomitant]
     Active Substance: METOLAZONE
  14. XOPENEX [Concomitant]
     Active Substance: LEVALBUTEROL HYDROCHLORIDE
  15. HIZENTRA [Suspect]
     Active Substance: HUMAN IMMUNOGLOBULIN G
     Indication: IMMUNODEFICIENCY COMMON VARIABLE
     Dosage: 17 G, QW
     Route: 058
     Dates: start: 20100524
  16. HIZENTRA [Suspect]
     Active Substance: HUMAN IMMUNOGLOBULIN G
     Dosage: UNK
     Route: 058
  17. ERYTHROCIN LACTOBIONATE [Concomitant]
     Active Substance: ERYTHROMYCIN LACTOBIONATE
  18. DIPHENHYDRAMINE. [Concomitant]
     Active Substance: DIPHENHYDRAMINE
  19. LIPITOR [Concomitant]
     Active Substance: ATORVASTATIN CALCIUM
  20. TRICOR                             /00090101/ [Concomitant]
     Active Substance: ADENOSINE
  21. HIZENTRA [Suspect]
     Active Substance: HUMAN IMMUNOGLOBULIN G
     Dosage: UNK
     Route: 058
  22. LIDOCAINE. [Concomitant]
     Active Substance: LIDOCAINE
  23. PERFOROMIST [Concomitant]
     Active Substance: FORMOTEROL FUMARATE DIHYDRATE
  24. GLIPIZIDE. [Concomitant]
     Active Substance: GLIPIZIDE
  25. ZYRTEC [Concomitant]
     Active Substance: CETIRIZINE HYDROCHLORIDE
  26. EPINEPHRINE. [Concomitant]
     Active Substance: EPINEPHRINE
  27. METFORMIN [Concomitant]
     Active Substance: METFORMIN HYDROCHLORIDE
  28. ALPRAZOLAM. [Concomitant]
     Active Substance: ALPRAZOLAM
  29. VITAMIN D3 [Concomitant]
     Active Substance: CHOLECALCIFEROL
  30. CEFTIN [Concomitant]
     Active Substance: CEFUROXIME AXETIL
  31. LOSARTAN. [Concomitant]
     Active Substance: LOSARTAN
  32. LEVEMIR [Concomitant]
     Active Substance: INSULIN DETEMIR
  33. GABAPENTIN. [Concomitant]
     Active Substance: GABAPENTIN
  34. TAMSULOSIN [Concomitant]
     Active Substance: TAMSULOSIN
  35. FENOFIBRATE. [Concomitant]
     Active Substance: FENOFIBRATE
  36. PLAVIX [Concomitant]
     Active Substance: CLOPIDOGREL BISULFATE
  37. HIZENTRA [Suspect]
     Active Substance: HUMAN IMMUNOGLOBULIN G
     Dosage: UNK
     Route: 058
  38. CEFTRIAXONE. [Concomitant]
     Active Substance: CEFTRIAXONE
  39. ASPIRIN. [Concomitant]
     Active Substance: ASPIRIN
  40. OXYGEN. [Concomitant]
     Active Substance: OXYGEN

REACTIONS (1)
  - Pneumonia [Unknown]
